FAERS Safety Report 6957750-2 (Version None)
Quarter: 2010Q3

REPORT INFORMATION
  Report Type: 
  Country: None (occurrence: None)
  Receive Date: 20100831
  Receipt Date: 20100823
  Transmission Date: 20110219
  Serious: Yes (Other)
  Sender: FDA-Public Use
  Company Number: FR-TEVA-245942ISR

PATIENT
  Age: 84 Year
  Sex: Male

DRUGS (2)
  1. GEMCITABINE [Suspect]
  2. GEMCITABINE [Suspect]

REACTIONS (3)
  - ASCITES [None]
  - PERIPHERAL ISCHAEMIA [None]
  - PULMONARY EMBOLISM [None]
